FAERS Safety Report 4546633-3 (Version None)
Quarter: 2005Q1

REPORT INFORMATION
  Report Type: 
  Country: None (occurrence: None)
  Receive Date: 20050103
  Receipt Date: 20041214
  Transmission Date: 20050727
  Serious: Yes (Hospitalization)
  Sender: FDA-Public Use
  Company Number: EWC041241623

PATIENT
  Age: 56 Year
  Sex: Female
  Weight: 52 kg

DRUGS (12)
  1. GEMZAR [Suspect]
     Indication: NON-SMALL CELL LUNG CANCER
     Dosage: 1000 MG/M2
     Dates: start: 20041112
  2. CELECOXIB [Concomitant]
  3. MAGNESIUM OXIDE [Concomitant]
  4. DOMPERIDONE [Concomitant]
  5. DEXAMETHASONE [Concomitant]
  6. MAGNESIUM OXIDE [Concomitant]
  7. SENOKOT (SENNA ALEXANDRINA) [Concomitant]
  8. MEDROXYPROGESTERONE ACETATE [Concomitant]
  9. BROWN MIXTURE [Concomitant]
  10. BENZONATATE [Concomitant]
  11. DOMPERIDONE [Concomitant]
  12. LORAZEPAM [Concomitant]

REACTIONS (7)
  - ASTHENIA [None]
  - HYPERAESTHESIA [None]
  - METASTASES TO SPINE [None]
  - PAIN IN EXTREMITY [None]
  - PNEUMONIA [None]
  - POSTOPERATIVE FEVER [None]
  - STEVENS-JOHNSON SYNDROME [None]
